FAERS Safety Report 5226854-7 (Version None)
Quarter: 2007Q1

REPORT INFORMATION
  Report Type: 
  Country: None (occurrence: None)
  Receive Date: 20070130
  Receipt Date: 20070112
  Transmission Date: 20070707
  Serious: Yes (Hospitalization)
  Sender: FDA-Public Use
  Company Number: 235504

PATIENT
  Age: 38 Year
  Sex: Female

DRUGS (3)
  1. HERCEPTIN [Suspect]
     Indication: BREAST CANCER METASTATIC
     Dosage: 92 MG, 1/WEEK, INTRAVENOUS
     Route: 042
     Dates: start: 20060905
  2. MYOCET (DOXORUBICIN/DOXORUBICIN HYDROCHLORIDE) [Suspect]
     Indication: BREAST CANCER METASTATIC
     Dosage: 70 MG, Q3W, INTRAVENOUS
     Route: 042
     Dates: start: 20060905
  3. PACLITAXEL [Suspect]
     Indication: BREAST CANCER METASTATIC
     Dosage: 112 MG, 1/WEEK, INTRAVENOUS
     Route: 042
     Dates: start: 20060905

REACTIONS (2)
  - STOMATITIS [None]
  - WHITE BLOOD CELL COUNT DECREASED [None]
